FAERS Safety Report 6023275-4 (Version None)
Quarter: 2008Q4

REPORT INFORMATION
  Report Type: 
  Country: None (occurrence: None)
  Receive Date: 20081223
  Receipt Date: 20081212
  Transmission Date: 20090506
  Serious: Yes (Death)
  Sender: FDA-Public Use
  Company Number: 2008003244

PATIENT
  Age: 60 Year
  Sex: Male

DRUGS (3)
  1. TARCEVA [Suspect]
     Indication: LUNG ADENOCARCINOMA
     Dosage: ORAL
     Route: 048
  2. GEMZAR [Concomitant]
  3. CARBOPLATIN [Concomitant]

REACTIONS (2)
  - RESPIRATORY ARREST [None]
  - SUDDEN DEATH [None]
